FAERS Safety Report 17169262 (Version 1)
Quarter: 2019Q4

REPORT INFORMATION
  Report Type: Spontaneous
  Country: US (occurrence: US)
  Receive Date: 20191218
  Receipt Date: 20191218
  Transmission Date: 20200122
  Serious: No
  Sender: FDA-Public Use
  Company Number: US-MYLANLABS-2019M1120323

PATIENT
  Sex: Female
  Weight: 542 kg

DRUGS (5)
  1. LIDOCAINE PATCH [Suspect]
     Active Substance: LIDOCAINE
     Indication: NEURALGIA
     Dosage: ONE EVERY 12 HOURS
     Route: 003
  2. LIDOCAINE PATCH [Suspect]
     Active Substance: LIDOCAINE
     Indication: CONTUSION
  3. LIDOCAINE PATCH [Suspect]
     Active Substance: LIDOCAINE
     Indication: ARTHRALGIA
  4. LIDOCAINE PATCH [Suspect]
     Active Substance: LIDOCAINE
     Indication: ARTHRITIS
  5. LIDOCAINE PATCH [Suspect]
     Active Substance: LIDOCAINE
     Indication: HERPES ZOSTER

REACTIONS (4)
  - Wrong technique in product usage process [Unknown]
  - Product adhesion issue [Unknown]
  - Product quality issue [Unknown]
  - Off label use [Unknown]
